FAERS Safety Report 8072026-0 (Version None)
Quarter: 2012Q1

REPORT INFORMATION
  Report Type: 
  Country: None (occurrence: None)
  Receive Date: 20120124
  Receipt Date: 20120124
  Transmission Date: 20120608
  Serious: No
  Sender: FDA-Public Use
  Company Number: None

PATIENT
  Age: 23 Year
  Sex: Female

DRUGS (1)
  1. ENBREL [Suspect]
     Dosage: 50MG /W SUBCUTANEOUSLY
     Route: 058
     Dates: start: 20111227, end: 20120113

REACTIONS (3)
  - PRURITUS [None]
  - BURNING SENSATION [None]
  - CONTUSION [None]
